FAERS Safety Report 9176571 (Version 1)
Quarter: 2013Q1

REPORT INFORMATION
  Report Type: Spontaneous
  Country: US (occurrence: US)
  Receive Date: 20130321
  Receipt Date: 20130321
  Transmission Date: 20140127
  Serious: Yes (Other)
  Sender: FDA-Public Use
  Company Number: US-JNJFOC-20130306769

PATIENT
  Sex: Female
  Weight: 54.43 kg

DRUGS (3)
  1. ORTHO TRI CYCLEN [Suspect]
     Indication: ACNE
     Route: 048
     Dates: start: 2007
  2. ORTHO TRI CYCLEN [Suspect]
     Indication: ACNE
     Route: 048
  3. ORTHO TRI CYCLEN [Suspect]
     Indication: ACNE
     Route: 048
     Dates: start: 2001, end: 2007

REACTIONS (8)
  - Anaemia [Recovered/Resolved]
  - Breast mass [Not Recovered/Not Resolved]
  - Breast pain [Recovered/Resolved]
  - Acne [Not Recovered/Not Resolved]
  - Acne [Recovered/Resolved]
  - Therapeutic response decreased [Unknown]
  - Menorrhagia [Recovered/Resolved]
  - Alopecia [Recovered/Resolved]
